FAERS Safety Report 8539283-5 (Version None)
Quarter: 2012Q3

REPORT INFORMATION
  Report Type: 
  Country: None (occurrence: None)
  Receive Date: 20120726
  Receipt Date: 20110720
  Transmission Date: 20120928
  Serious: No
  Sender: FDA-Public Use
  Company Number: US-ASTRAZENECA-2011SE43559

PATIENT
  Age: 704 Month
  Sex: Female

DRUGS (3)
  1. SEROQUEL [Suspect]
     Indication: SLEEP DISORDER
     Route: 048
     Dates: start: 20060805
  2. AMBIEN [Concomitant]
     Dates: start: 20070501
  3. SEROQUEL [Suspect]
     Route: 048
     Dates: end: 20070501

REACTIONS (6)
  - DIABETES MELLITUS [None]
  - NAUSEA [None]
  - WEIGHT LOSS POOR [None]
  - DIARRHOEA [None]
  - TREMOR [None]
  - GLUCOSE TOLERANCE IMPAIRED [None]
